FAERS Safety Report 17549517 (Version 1)
Quarter: 2020Q1

REPORT INFORMATION
  Report Type: Spontaneous
  Country: US (occurrence: US)
  Receive Date: 20200316
  Receipt Date: 20200316
  Transmission Date: 20200409
  Serious: No
  Sender: FDA-Public Use
  Company Number: None

PATIENT
  Age: 36 Year
  Sex: Female
  Weight: 108 kg

DRUGS (1)
  1. BETADINE [Suspect]
     Active Substance: POVIDONE-IODINE
     Indication: ANTIBIOTIC PROPHYLAXIS
     Route: 061
     Dates: start: 20200311, end: 20200311

REACTIONS (4)
  - Rash erythematous [None]
  - Drug hypersensitivity [None]
  - Pruritus [None]
  - Skin warm [None]

NARRATIVE: CASE EVENT DATE: 20200313
